FAERS Safety Report 7504221-0 (Version None)
Quarter: 2011Q2

REPORT INFORMATION
  Report Type: 
  Country: None (occurrence: None)
  Receive Date: 20110401
  Receipt Date: 20110106
  Transmission Date: 20111010
  Serious: No
  Sender: FDA-Public Use
  Company Number: US-004489

PATIENT
  Sex: Male
  Weight: 127.0072 kg

DRUGS (8)
  1. METOPROLOL SUCCINATE [Concomitant]
  2. FIRMAGON [Suspect]
     Indication: PROSTATE CANCER
     Dosage: 240 MG 1X SUBCUTANEOUS
     Route: 058
     Dates: start: 20101210, end: 20101210
  3. SIMVASTATIN [Concomitant]
  4. MOBIC [Concomitant]
  5. ASPIRIN [Concomitant]
  6. DETROL LA [Concomitant]
  7. TERBINAFINE HCL [Concomitant]
  8. TAMSULOSIN HCL [Concomitant]

REACTIONS (1)
  - INJECTION SITE MASS [None]
